FAERS Safety Report 25312625 (Version 1)
Quarter: 2025Q2

REPORT INFORMATION
  Report Type: Spontaneous
  Country: US (occurrence: None)
  Receive Date: 20250513
  Receipt Date: 20250513
  Transmission Date: 20250716
  Serious: Yes (Hospitalization)
  Sender: FDA-CTU
  Company Number: None

PATIENT
  Age: 88 Year
  Sex: Male

DRUGS (1)
  1. AMOXICILLIN TRIHYDRATE [Suspect]
     Active Substance: AMOXICILLIN
     Indication: Otitis media
     Dosage: FREQUENCY : TWICE A DAY;?
     Route: 048
     Dates: start: 20250109, end: 20250114

REACTIONS (1)
  - Chest pain [None]

NARRATIVE: CASE EVENT DATE: 20250114
